FAERS Safety Report 7121936-7 (Version None)
Quarter: 2010Q4

REPORT INFORMATION
  Report Type: 
  Country: None (occurrence: None)
  Receive Date: 20101124
  Receipt Date: 20101115
  Transmission Date: 20110411
  Serious: Yes (Other)
  Sender: FDA-Public Use
  Company Number: US-TEVA-255501USA

PATIENT
  Age: 61 Year
  Sex: Male

DRUGS (3)
  1. METFORMIN HYDROCHLORIDE [Suspect]
     Indication: TYPE 2 DIABETES MELLITUS
     Route: 048
  2. NICOTINIC ACID [Concomitant]
  3. SIMVASTATIN [Concomitant]

REACTIONS (1)
  - HEPATOTOXICITY [None]
